FAERS Safety Report 5064569-9 (Version None)
Quarter: 2006Q3

REPORT INFORMATION
  Report Type: 
  Country: None (occurrence: None)
  Receive Date: 20060706
  Receipt Date: 20060329
  Transmission Date: 20061208
  Serious: No
  Sender: FDA-Public Use
  Company Number: 200611955BWH

PATIENT
  Age: 66 Year
  Sex: Male

DRUGS (5)
  1. LEVITRA [Suspect]
     Indication: ERECTILE DYSFUNCTION
     Dosage: 10 MG, TOTAL DAILY, ORAL
     Route: 048
  2. PRINZIDE [Concomitant]
  3. SINGULAIR [Concomitant]
  4. CADUET [Concomitant]
  5. LIPITOR [Concomitant]

REACTIONS (1)
  - ANORGASMIA [None]
